FAERS Safety Report 25149491 (Version 4)
Quarter: 2025Q3

REPORT INFORMATION
  Report Type: Report from Study
  Country: US (occurrence: US)
  Receive Date: 20250402
  Receipt Date: 20250729
  Transmission Date: 20251020
  Serious: Yes (Other)
  Sender: CSL BEHRING
  Company Number: US-BEH-2025200569

PATIENT
  Age: 62 Year
  Sex: Male
  Weight: 87.543 kg

DRUGS (2)
  1. ZEMAIRA [Suspect]
     Active Substance: .ALPHA.1-PROTEINASE INHIBITOR HUMAN
     Indication: Alpha-1 antitrypsin deficiency
     Dosage: UNK, QW
     Route: 065
  2. ZEMAIRA [Suspect]
     Active Substance: .ALPHA.1-PROTEINASE INHIBITOR HUMAN
     Dosage: UNK, QW
     Route: 042

REACTIONS (15)
  - Atrial fibrillation [Recovered/Resolved]
  - Loss of consciousness [Recovering/Resolving]
  - Chronic obstructive pulmonary disease [Recovering/Resolving]
  - Influenza [Recovered/Resolved]
  - Cough [Recovered/Resolved]
  - Oropharyngeal pain [Recovered/Resolved]
  - Sputum increased [Recovered/Resolved]
  - Pain [Recovered/Resolved]
  - Gastrointestinal disorder [Unknown]
  - COVID-19 [Recovering/Resolving]
  - Dyspnoea [Recovering/Resolving]
  - Cough [Recovering/Resolving]
  - Respiratory disorder [Unknown]
  - Dyspnoea [Unknown]
  - Sputum increased [Unknown]

NARRATIVE: CASE EVENT DATE: 20250202
